FAERS Safety Report 8773197 (Version 4)
Quarter: 2013Q2

REPORT INFORMATION
  Report Type: Report from Study
  Country: RO (occurrence: RO)
  Receive Date: 20120907
  Receipt Date: 20130606
  Transmission Date: 20140414
  Serious: Yes (Hospitalization)
  Sender: FDA-Public Use
  Company Number: RO-ROCHE-1118294

PATIENT
  Age: 67 Year
  Sex: Female
  Weight: 37 kg

DRUGS (3)
  1. VEMURAFENIB [Suspect]
     Indication: MALIGNANT MELANOMA
     Route: 048
     Dates: start: 20120511, end: 20120618
  2. VEMURAFENIB [Suspect]
     Route: 048
     Dates: start: 20120619
  3. VEMURAFENIB [Suspect]
     Route: 048
     Dates: start: 20120710, end: 20120730

REACTIONS (1)
  - Cachexia [Recovered/Resolved with Sequelae]
